FAERS Safety Report 21090928 (Version 1)
Quarter: 2022Q3

REPORT INFORMATION
  Report Type: Spontaneous
  Country: FR (occurrence: FR)
  Receive Date: 20220716
  Receipt Date: 20220716
  Transmission Date: 20221026
  Serious: Yes (Hospitalization)
  Sender: FDA-Public Use
  Company Number: None

PATIENT
  Age: 53 Year
  Sex: Male

DRUGS (5)
  1. AMOXICILLIN [Suspect]
     Active Substance: AMOXICILLIN
     Indication: Rhinitis
     Dosage: UNIT DOSE : 3 G, FREQUENCY TIME : 1 DAY, DURATION :6 DAYS
     Route: 065
     Dates: start: 20220602, end: 20220608
  2. PREDNISOLONE [Suspect]
     Active Substance: PREDNISOLONE
     Indication: Rhinitis
     Dosage: FREQUENCY TIME : 1 DAY, DURATION : 1 DAY, UNIT DOSE : 20MG
     Route: 065
     Dates: start: 20220602, end: 20220602
  3. ATORVASTATIN [Concomitant]
     Active Substance: ATORVASTATIN
     Indication: Product used for unknown indication
  4. LEVOTHYROXINE [Concomitant]
     Active Substance: LEVOTHYROXINE
     Indication: Product used for unknown indication
  5. HYDROCHLOROTHIAZIDE\IRBESARTAN [Concomitant]
     Active Substance: HYDROCHLOROTHIAZIDE\IRBESARTAN
     Indication: Product used for unknown indication

REACTIONS (2)
  - Vascular purpura [Recovering/Resolving]
  - Rash morbilliform [Recovering/Resolving]

NARRATIVE: CASE EVENT DATE: 20220606
